FAERS Safety Report 8562646-9 (Version None)
Quarter: 2012Q3

REPORT INFORMATION
  Report Type: 
  Country: None (occurrence: None)
  Receive Date: 20120802
  Receipt Date: 20120716
  Transmission Date: 20120928
  Serious: No
  Sender: FDA-Public Use
  Company Number: US-AMGEN-USASP2012044002

PATIENT
  Age: 53 Year
  Sex: Female

DRUGS (2)
  1. TREXALL [Concomitant]
     Indication: RHEUMATOID ARTHRITIS
     Dosage: 1 MG, QWK
     Dates: start: 20100101
  2. ENBREL [Suspect]
     Indication: RHEUMATOID ARTHRITIS
     Dosage: 50 MG, QWK
     Dates: start: 20111001, end: 20120209

REACTIONS (5)
  - NASOPHARYNGITIS [None]
  - SINUSITIS [None]
  - EAR INFECTION [None]
  - EYE INFECTION [None]
  - LOWER RESPIRATORY TRACT INFECTION [None]
